FAERS Safety Report 7996528 (Version 2)
Quarter: 2015Q1

REPORT INFORMATION
  Report Type: Spontaneous
  Country: US (occurrence: US)
  Receive Date: 20110617
  Receipt Date: 20150112
  Transmission Date: 20150721
  Serious: Yes (Hospitalization, Other)
  Sender: FDA-Public Use
  Company Number: PHHY2010US81222

PATIENT
  Age: 42 Year
  Sex: Female
  Weight: 109 kg

DRUGS (13)
  1. HYDROCHLOROTHIAZIDE. [Concomitant]
     Active Substance: HYDROCHLOROTHIAZIDE
     Indication: PRODUCT USED FOR UNKNOWN INDICATION
     Dosage: 25 MG, QD
     Route: 048
  2. ARIPIPRAZOLE. [Concomitant]
     Active Substance: ARIPIPRAZOLE
     Indication: PRODUCT USED FOR UNKNOWN INDICATION
     Dosage: 30 MG, QD
     Route: 048
  3. GLYBURIDE. [Concomitant]
     Active Substance: GLYBURIDE
     Indication: PRODUCT USED FOR UNKNOWN INDICATION
     Dosage: 2.5 MG, QD
     Route: 048
  4. FEXOFENADINE HYDROCHLORIDE. [Concomitant]
     Active Substance: FEXOFENADINE HYDROCHLORIDE
     Indication: PRODUCT USED FOR UNKNOWN INDICATION
     Dosage: 60 MG, QD
     Route: 048
  5. AMLODIPINE BESYLATE. [Concomitant]
     Active Substance: AMLODIPINE BESYLATE
     Indication: PRODUCT USED FOR UNKNOWN INDICATION
     Dosage: 10 MG, QD
     Route: 048
  6. BROMOCRYPTINE MESYLATE [Concomitant]
     Indication: PRODUCT USED FOR UNKNOWN INDICATION
     Dosage: 5 MG, TID
     Route: 065
  7. ENALAPRIL MALEATE. [Concomitant]
     Active Substance: ENALAPRIL MALEATE
     Indication: PRODUCT USED FOR UNKNOWN INDICATION
     Dosage: 10 MG, QD
     Route: 048
  8. LEPONEX [Suspect]
     Active Substance: CLOZAPINE
     Indication: SCHIZOPHRENIA, PARANOID TYPE
     Route: 065
  9. DIVALPROEX SODIUM. [Concomitant]
     Active Substance: DIVALPROEX SODIUM
     Indication: PRODUCT USED FOR UNKNOWN INDICATION
     Dosage: 1500 MG, (1000 MG IN THE MORNING AND 500 MG IN THE EVENING)
     Route: 048
  10. PIOGLITAZONE HYDROCHLORIDE. [Concomitant]
     Active Substance: PIOGLITAZONE HYDROCHLORIDE
     Indication: PRODUCT USED FOR UNKNOWN INDICATION
     Dosage: 30 MG, QD
     Route: 048
  11. PALIPERIDONE [Concomitant]
     Active Substance: PALIPERIDONE
     Indication: PRODUCT USED FOR UNKNOWN INDICATION
     Dosage: 3 MG, BEDTIME
     Route: 048
  12. PALIPERIDONE [Concomitant]
     Active Substance: PALIPERIDONE
     Dosage: 9 MG, BEDTIME
  13. VENLAFAXINE HYDROCHLORIDE. [Concomitant]
     Active Substance: VENLAFAXINE HYDROCHLORIDE
     Indication: PRODUCT USED FOR UNKNOWN INDICATION
     Route: 065

REACTIONS (49)
  - Neuroleptic malignant syndrome [Unknown]
  - Pain in extremity [Unknown]
  - Muscle injury [Unknown]
  - Heart rate increased [Unknown]
  - Catatonia [Recovered/Resolved]
  - Confusional state [Recovered/Resolved]
  - Pneumonia [Unknown]
  - Leukocytosis [Unknown]
  - Drug intolerance [Unknown]
  - Encephalopathy [Unknown]
  - Asthenia [Unknown]
  - Abnormal behaviour [Unknown]
  - Acute kidney injury [Unknown]
  - Wheezing [Unknown]
  - Oxygen saturation decreased [Unknown]
  - Pyrexia [Unknown]
  - Muscle rigidity [Recovered/Resolved]
  - Hypokalaemia [Unknown]
  - Acute respiratory distress syndrome [Unknown]
  - Blood creatinine increased [Unknown]
  - Blood urea increased [Unknown]
  - Blood creatine phosphokinase increased [Recovered/Resolved]
  - Muscular weakness [Unknown]
  - Inspiratory capacity decreased [Unknown]
  - Abdominal tenderness [Unknown]
  - Anxiety [Unknown]
  - Agitation [Unknown]
  - Mental status changes [Recovered/Resolved]
  - Logorrhoea [Recovered/Resolved]
  - Oliguria [Unknown]
  - Decreased appetite [Unknown]
  - Blood creatine phosphokinase MB increased [Unknown]
  - Hyperthermia [Unknown]
  - Productive cough [Unknown]
  - Lethargy [Unknown]
  - Autonomic nervous system imbalance [Recovered/Resolved]
  - Hypomagnesaemia [Unknown]
  - Staring [Recovered/Resolved]
  - Dysphagia [Unknown]
  - Hyperhidrosis [Unknown]
  - Rhabdomyolysis [Unknown]
  - Myoglobin urine present [Unknown]
  - Blood pressure increased [Unknown]
  - Urinary retention [Unknown]
  - Tremor [Unknown]
  - Dyspnoea [Unknown]
  - Lung infiltration [Unknown]
  - Pneumonia aspiration [Unknown]
  - Chills [Unknown]
